FAERS Safety Report 5377179-0 (Version None)
Quarter: 2007Q2

REPORT INFORMATION
  Report Type: 
  Country: None (occurrence: None)
  Receive Date: 20070629
  Receipt Date: 20070629
  Transmission Date: 20071010
  Serious: Yes (Hospitalization)
  Sender: FDA-Public Use
  Company Number: None

PATIENT
  Sex: Male

DRUGS (1)
  1. IRON DEXTRAN [Suspect]
     Dosage: 50MG ONCE IV
     Route: 042
     Dates: start: 20070615, end: 20070615

REACTIONS (4)
  - ABDOMINAL PAIN [None]
  - HYPOTENSION [None]
  - INFUSION RELATED REACTION [None]
  - NAUSEA [None]
